FAERS Safety Report 25520512 (Version 2)
Quarter: 2025Q3

REPORT INFORMATION
  Report Type: Spontaneous
  Country: EU (occurrence: EU)
  Receive Date: 20250704
  Receipt Date: 20250722
  Transmission Date: 20251021
  Serious: Yes (Hospitalization, Other)
  Sender: PFIZER
  Company Number: EU-002147023-NVSC2025ES099556

PATIENT
  Age: 57 Year
  Sex: Male

DRUGS (16)
  1. AZITHROMYCIN [Suspect]
     Active Substance: AZITHROMYCIN
     Route: 065
  2. MONTELUKAST [Suspect]
     Active Substance: MONTELUKAST
     Dosage: 10 MG,1X/DAY
     Route: 065
  3. OMEPRAZOLE [Suspect]
     Active Substance: OMEPRAZOLE
     Route: 065
  4. BISOPROLOL [Suspect]
     Active Substance: BISOPROLOL
     Route: 065
  5. ACETAMINOPHEN [Suspect]
     Active Substance: ACETAMINOPHEN
     Route: 065
  6. ATORVASTATIN\EZETIMIBE [Suspect]
     Active Substance: ATORVASTATIN\EZETIMIBE
     Route: 065
  7. CERTICAN [Suspect]
     Active Substance: EVEROLIMUS
     Indication: Lung transplant
     Dosage: 0.5 MG, 2X/DAY (EVERY 12 HRS)
     Route: 048
     Dates: start: 202404, end: 20250603
  8. PROGRAF [Concomitant]
     Active Substance: TACROLIMUS
     Dosage: 1 MG, 2X/DAY (BID)
     Route: 065
  9. PREDNISONE [Concomitant]
     Active Substance: PREDNISONE
     Dosage: 5 MG, 1X/DAY (EVERY 24 HOURS)
     Route: 065
  10. AMBISOME [Concomitant]
     Active Substance: AMPHOTERICIN B
     Dosage: 50 MG, WEEKLY, (INHALATION USE)
  11. AMBISOME [Concomitant]
     Active Substance: AMPHOTERICIN B
  12. CALCIUM CARBONATE\CHOLECALCIFEROL [Concomitant]
     Active Substance: CALCIUM CARBONATE\CHOLECALCIFEROL
     Dosage: UNK, 2X/DAY (EVERY 12 HOURS)
     Route: 065
  13. OMACOR [Concomitant]
     Active Substance: OMEGA-3-ACID ETHYL ESTERS
     Dosage: 2 DF, 2X/DAY (EVERY 12 HOURS)
     Route: 065
  14. MAGNOGENE [MAGNESIUM BROMIDE;MAGNESIUM FLUORIDE;MAGNESIUM HYDROXIDE] [Concomitant]
     Dosage: 1 DF, 2X/DAY (EVERY 12 HOURS)
     Route: 065
  15. DIAZEPAM [Concomitant]
     Active Substance: DIAZEPAM
     Route: 065
  16. METAMIZOLE [Concomitant]
     Active Substance: METAMIZOLE
     Route: 065

REACTIONS (9)
  - Chronic inflammatory response syndrome [Recovered/Resolved]
  - Mouth ulceration [Recovered/Resolved]
  - Odynophagia [Recovered/Resolved]
  - Pain [Recovered/Resolved]
  - Pyrexia [Recovered/Resolved]
  - Superinfection [Unknown]
  - Chronic kidney disease [Unknown]
  - Mononeuropathy [Not Recovered/Not Resolved]
  - Off label use [Unknown]

NARRATIVE: CASE EVENT DATE: 20250501
